FAERS Safety Report 9064080 (Version 1)
Quarter: 2013Q1

REPORT INFORMATION
  Report Type: Report from Study
  Country: US (occurrence: US)
  Receive Date: 20130131
  Receipt Date: 20130131
  Transmission Date: 20140127
  Serious: No
  Sender: FDA-Public Use
  Company Number: US-ABBOTT-12P-163-1002474-00

PATIENT
  Age: 42 Year
  Sex: Female
  Weight: 72.64 kg

DRUGS (5)
  1. HUMIRA [Suspect]
     Indication: ANKYLOSING SPONDYLITIS
     Route: 058
     Dates: start: 201205
  2. HUMIRA [Suspect]
     Indication: UNDIFFERENTIATED CONNECTIVE TISSUE DISEASE
  3. PLAQUENIL [Concomitant]
     Indication: UNDIFFERENTIATED CONNECTIVE TISSUE DISEASE
     Dosage: 2 PILLS DAILY
  4. PLAQUENIL [Concomitant]
     Indication: ANKYLOSING SPONDYLITIS
  5. ADDERALL [Concomitant]
     Indication: ATTENTION DEFICIT/HYPERACTIVITY DISORDER

REACTIONS (6)
  - Device malfunction [Unknown]
  - Incorrect dose administered [Unknown]
  - Inappropriate schedule of drug administration [Not Recovered/Not Resolved]
  - Injection site pain [Not Recovered/Not Resolved]
  - Injection site haemorrhage [Not Recovered/Not Resolved]
  - Injection site vesicles [Recovered/Resolved]
